FAERS Safety Report 5499490-5 (Version None)
Quarter: 2007Q4

REPORT INFORMATION
  Report Type: 
  Country: None (occurrence: None)
  Receive Date: 20071026
  Receipt Date: 20071018
  Transmission Date: 20080405
  Serious: Yes (Other)
  Sender: FDA-Public Use
  Company Number: US-ASTRAZENECA-2007UW02087

PATIENT
  Sex: Male

DRUGS (9)
  1. SEROQUEL [Suspect]
     Indication: NERVOUSNESS
     Route: 048
     Dates: start: 20021201
  2. SEROQUEL [Suspect]
     Indication: INSOMNIA
     Route: 048
     Dates: start: 20021201
  3. SEROQUEL [Suspect]
     Route: 048
     Dates: start: 20030501
  4. SEROQUEL [Suspect]
     Route: 048
     Dates: start: 20030501
  5. SEROQUEL [Suspect]
     Route: 048
  6. SEROQUEL [Suspect]
     Route: 048
  7. GEODON [Concomitant]
     Dates: start: 20030601, end: 20031001
  8. GEODON [Concomitant]
     Dates: start: 20050201, end: 20070401
  9. EQUETRO [Concomitant]
     Dates: start: 20060801, end: 20061101

REACTIONS (11)
  - ANXIETY [None]
  - ARTHRALGIA [None]
  - CHEST PAIN [None]
  - DEPRESSION [None]
  - DIABETES MELLITUS [None]
  - DYSPEPSIA [None]
  - ERECTILE DYSFUNCTION [None]
  - MULTIPLE ALLERGIES [None]
  - MYOCARDIAL INFARCTION [None]
  - PAIN [None]
  - PLASMAPHERESIS [None]
